FAERS Safety Report 8500409-0 (Version None)
Quarter: 2012Q3

REPORT INFORMATION
  Report Type: 
  Country: None (occurrence: None)
  Receive Date: 20120705
  Receipt Date: 20120705
  Transmission Date: 20120928
  Serious: Yes (Hospitalization)
  Sender: FDA-Public Use
  Company Number: None

PATIENT
  Sex: Female
  Weight: 105.69 kg

DRUGS (17)
  1. FISH OIL [Concomitant]
  2. CHLORZOXAZO [Concomitant]
  3. ARIMIDEX [Concomitant]
  4. GHLOHEXIDINE GLUCONATE [Concomitant]
  5. M.V.I. [Concomitant]
  6. TRAVATAN [Concomitant]
  7. ZOMETA [Suspect]
     Dosage: 4 MG
  8. COMBIGAN [Concomitant]
  9. DICLOFENAC [Concomitant]
  10. ULTRAM [Concomitant]
  11. CALCIUM WITH VITAMIN D [Concomitant]
  12. CYMBALTA [Concomitant]
  13. FIBER THERAPY [Concomitant]
  14. ZETIA [Concomitant]
  15. AMLODIPINE [Concomitant]
  16. LISINOPRIL [Concomitant]
  17. ASCORBIC ACID [Concomitant]

REACTIONS (2)
  - IMPAIRED HEALING [None]
  - ORAL TORUS [None]
